FAERS Safety Report 4703031-7 (Version None)
Quarter: 2005Q2

REPORT INFORMATION
  Report Type: 
  Country: None (occurrence: None)
  Receive Date: 20050628
  Receipt Date: 20050628
  Transmission Date: 20051028
  Serious: No
  Sender: FDA-Public Use
  Company Number: None

PATIENT
  Sex: Male
  Weight: 112.4921 kg

DRUGS (5)
  1. LIPITOR [Suspect]
     Indication: HYPERLIPIDAEMIA
  2. ZETIA [Suspect]
     Indication: HYPERLIPIDAEMIA
  3. ZETIA [Suspect]
     Indication: OSTEOARTHRITIS
  4. DICLOFENAC 75 MG BID [Suspect]
     Indication: HYPERLIPIDAEMIA
  5. DICLOFENAC 75 MG BID [Suspect]
     Indication: OSTEOARTHRITIS

REACTIONS (2)
  - ALANINE AMINOTRANSFERASE INCREASED [None]
  - ASPARTATE AMINOTRANSFERASE INCREASED [None]
